FAERS Safety Report 15127145 (Version 2)
Quarter: 2018Q3

REPORT INFORMATION
  Report Type: Spontaneous
  Country: US (occurrence: US)
  Receive Date: 20180710
  Receipt Date: 20180904
  Transmission Date: 20181010
  Serious: No
  Sender: FDA-Public Use
  Company Number: US-TEVA-2018-US-921693

PATIENT
  Sex: Female

DRUGS (1)
  1. COPAXONE [Suspect]
     Active Substance: GLATIRAMER ACETATE
     Dosage: FORM STRENGTH : UNKNOWN
     Route: 065

REACTIONS (5)
  - Injection site reaction [Unknown]
  - Injection site erythema [Unknown]
  - Injection site bruising [Unknown]
  - Nodule [Unknown]
  - Injection site pain [Unknown]
